FAERS Safety Report 9725568 (Version 1)
Quarter: 2013Q4

REPORT INFORMATION
  Report Type: Spontaneous
  Country: CA (occurrence: CA)
  Receive Date: 20131203
  Receipt Date: 20131203
  Transmission Date: 20140711
  Serious: Yes (Other)
  Sender: FDA-Public Use
  Company Number: CA-GE HEALTHCARE MEDICAL DIAGNOSTICS-OMPQ-PR-1311S-1354

PATIENT
  Age: 41 Year
  Sex: Female
  Weight: 89.89 kg

DRUGS (3)
  1. OMNIPAQUE [Suspect]
     Indication: PRODUCT USED FOR UNKNOWN INDICATION
     Dosage: DOSE NOT REPORTED
     Route: 042
     Dates: start: 20131125, end: 20131125
  2. OMNIPAQUE [Suspect]
     Indication: DIAGNOSTIC PROCEDURE
  3. GADOLINIUM [Concomitant]
     Indication: DIAGNOSTIC PROCEDURE
     Dates: start: 20131125, end: 20131125

REACTIONS (2)
  - Throat irritation [Recovered/Resolved]
  - Cough [Recovered/Resolved]
